FAERS Safety Report 17224383 (Version 1)
Quarter: 2020Q1

REPORT INFORMATION
  Report Type: Spontaneous
  Country: IN (occurrence: IN)
  Receive Date: 20200102
  Receipt Date: 20200102
  Transmission Date: 20200409
  Serious: Yes (Other)
  Sender: FDA-Public Use
  Company Number: NVSC2019IN082111

PATIENT
  Age: 57 Year
  Sex: Male

DRUGS (1)
  1. PAZOPANIB [Suspect]
     Active Substance: PAZOPANIB
     Indication: ADENOCARCINOMA GASTRIC
     Dosage: 400 MG, BID
     Route: 065

REACTIONS (3)
  - Malignant neoplasm progression [Unknown]
  - Adenocarcinoma gastric [Unknown]
  - Product use in unapproved indication [Unknown]
